FAERS Safety Report 6339908-9 (Version None)
Quarter: 2009Q3

REPORT INFORMATION
  Report Type: 
  Country: None (occurrence: None)
  Receive Date: 20090903
  Receipt Date: 20090826
  Transmission Date: 20100115
  Serious: Yes (Life-Threatening)
  Sender: FDA-Public Use
  Company Number: NL-TEVA-201546ISR

PATIENT
  Sex: Female

DRUGS (6)
  1. FLUCONAZOLE [Suspect]
     Dates: start: 20090615, end: 20090617
  2. SEVOFLURANE [Suspect]
     Indication: ANAESTHESIA
  3. PARACETAMOL [Concomitant]
  4. ESOMEPRAZOLE MAGNESIUM [Concomitant]
  5. SPIRONOLACTONE [Concomitant]
  6. ACENOCOUMAROL [Concomitant]

REACTIONS (2)
  - CARDIAC ARREST [None]
  - TORSADE DE POINTES [None]
